FAERS Safety Report 23221013 (Version 1)
Quarter: 2023Q4

REPORT INFORMATION
  Report Type: Spontaneous
  Country: US (occurrence: US)
  Receive Date: 20231123
  Receipt Date: 20231123
  Transmission Date: 20240110
  Serious: No
  Sender: FDA-Public Use
  Company Number: US-PFIZER INC-202300372680

PATIENT
  Age: 5 Decade
  Sex: Male

DRUGS (1)
  1. ENBREL [Suspect]
     Active Substance: ETANERCEPT
     Indication: Arthritis
     Dosage: UNK
     Route: 065
     Dates: start: 201307, end: 2013

REACTIONS (2)
  - Drug ineffective [Unknown]
  - Tachycardia [Unknown]

NARRATIVE: CASE EVENT DATE: 20130101
